FAERS Safety Report 6466541-0 (Version None)
Quarter: 2009Q4

REPORT INFORMATION
  Report Type: 
  Country: None (occurrence: None)
  Receive Date: 20091127
  Receipt Date: 20091119
  Transmission Date: 20100525
  Serious: Yes (Hospitalization)
  Sender: FDA-Public Use
  Company Number: 2009029206

PATIENT
  Age: 41 Year
  Sex: Female

DRUGS (5)
  1. FENTORA [Suspect]
     Indication: BACK PAIN
     Dosage: BU
     Route: 002
     Dates: start: 20050101, end: 20090201
  2. FENTORA [Suspect]
     Indication: NECK PAIN
     Dosage: BU
     Route: 002
     Dates: start: 20050101, end: 20090201
  3. LEVOXYL [Concomitant]
  4. CENESTIN [Concomitant]
  5. TOPAMAX [Concomitant]

REACTIONS (4)
  - DRUG PRESCRIBING ERROR [None]
  - INAPPROPRIATE SCHEDULE OF DRUG ADMINISTRATION [None]
  - SURGERY [None]
  - THROAT TIGHTNESS [None]
